FAERS Safety Report 23666264 (Version 1)
Quarter: 2024Q1

REPORT INFORMATION
  Report Type: Spontaneous
  Country: US (occurrence: US)
  Receive Date: 20240324
  Receipt Date: 20240324
  Transmission Date: 20240410
  Serious: No
  Sender: FDA-Public Use
  Company Number: None

PATIENT
  Sex: Female

DRUGS (2)
  1. NICOTINE TRANSDERMAL SYSTEM [Suspect]
     Active Substance: NICOTINE
     Indication: Smoking cessation therapy
     Dosage: 7 MILLIGRAM
     Route: 062
     Dates: start: 20231220
  2. NICOTINE TRANSDERMAL SYSTEM [Suspect]
     Active Substance: NICOTINE
     Indication: Smoking cessation therapy
     Dosage: 14 MILLIGRAM
     Route: 062

REACTIONS (2)
  - Wrong technique in product usage process [Unknown]
  - Anxiety [Unknown]
